FAERS Safety Report 14484322 (Version 2)
Quarter: 2018Q2

REPORT INFORMATION
  Report Type: Report from Study
  Country: None (occurrence: US)
  Receive Date: 20180205
  Receipt Date: 20180624
  Transmission Date: 20180711
  Serious: Yes (Other)
  Sender: FDA-Public Use
  Company Number: US-ABBVIE-18K-163-2243487-00

PATIENT
  Sex: Female

DRUGS (2)
  1. HUMIRA [Suspect]
     Active Substance: ADALIMUMAB
     Indication: COLITIS ULCERATIVE
     Route: 058
  2. HUMIRA [Suspect]
     Active Substance: ADALIMUMAB
     Dosage: DOSE INCREASED
     Route: 058

REACTIONS (6)
  - Post procedural complication [Recovering/Resolving]
  - Diarrhoea [Recovering/Resolving]
  - Drug effect incomplete [Not Recovered/Not Resolved]
  - Anal fissure [Unknown]
  - Gastrointestinal oedema [Unknown]
  - Post procedural inflammation [Recovering/Resolving]
